FAERS Safety Report 13069894 (Version 1)
Quarter: 2016Q4

REPORT INFORMATION
  Report Type: Spontaneous
  Country: IT (occurrence: IT)
  Receive Date: 20161228
  Receipt Date: 20161228
  Transmission Date: 20170207
  Serious: Yes (Other)
  Sender: FDA-Public Use
  Company Number: IT-SHIRE-IT201620280

PATIENT
  Age: 37 Year
  Sex: Male

DRUGS (1)
  1. MESAVANCOL [Suspect]
     Active Substance: MESALAMINE
     Indication: CROHN^S DISEASE
     Dosage: 3600 MG (1200 MG TABLETS), UNKNOWN (DAILY)
     Route: 048
     Dates: start: 20161102, end: 20161130

REACTIONS (3)
  - Product use issue [Recovered/Resolved]
  - Mastoiditis [Recovering/Resolving]
  - Pain [Recovering/Resolving]

NARRATIVE: CASE EVENT DATE: 20161102
